FAERS Safety Report 23472785 (Version 2)
Quarter: 2024Q1

REPORT INFORMATION
  Report Type: Spontaneous
  Country: IL (occurrence: IL)
  Receive Date: 20240202
  Receipt Date: 20240221
  Transmission Date: 20240410
  Serious: Yes (Hospitalization, Other)
  Sender: FDA-Public Use
  Company Number: IL-CELLTRION INC.-2023IL024912

PATIENT

DRUGS (7)
  1. INFLIXIMAB [Suspect]
     Active Substance: INFLIXIMAB
     Indication: Arthropathy
     Dosage: 800 MG, THERAPY DURATION: ABOUT A YEAR, INCE EVERY 8 WEEKS
     Route: 042
     Dates: start: 202208
  2. INFLIXIMAB [Suspect]
     Active Substance: INFLIXIMAB
     Indication: Rheumatoid arthritis
     Dosage: LATEST DOSING REGIMEN: 800MG I.V INFUSION ONCE A MONTH
     Route: 042
     Dates: end: 20231015
  3. INFLIXIMAB [Suspect]
     Active Substance: INFLIXIMAB
     Dosage: 800 MG, EVERY 6 WEEKS
     Route: 042
     Dates: start: 20230528
  4. INFLIXIMAB [Suspect]
     Active Substance: INFLIXIMAB
     Dosage: 800 MG, EVERY 6 WEEKS
     Route: 042
     Dates: start: 20230717
  5. INFLIXIMAB [Suspect]
     Active Substance: INFLIXIMAB
     Dosage: 800 MG ONCE A MONTH ABOUT 1.2 YEARS
     Route: 042
     Dates: start: 202208, end: 20231015
  6. AUGMENTIN [Concomitant]
     Active Substance: AMOXICILLIN\CLAVULANATE POTASSIUM
     Indication: Lymphadenitis
     Dosage: 1 GRAM I.V PER DAY, 3 TIMES
     Route: 042
     Dates: start: 20230820
  7. AUGMENTIN [Concomitant]
     Active Substance: AMOXICILLIN\CLAVULANATE POTASSIUM
     Dosage: 875 MG EVERY DAY FOR DURATION OF 5 DAYS
     Dates: start: 20230822

REACTIONS (7)
  - Infusion site extravasation [Unknown]
  - Lymphadenitis [Recovered/Resolved]
  - COVID-19 [Recovered/Resolved]
  - Lymphadenopathy [Not Recovered/Not Resolved]
  - Pharyngitis [Recovered/Resolved]
  - Tonsillitis [Recovered/Resolved]
  - Device infusion issue [Unknown]

NARRATIVE: CASE EVENT DATE: 20230601
